FAERS Safety Report 4599196-0 (Version None)
Quarter: 2005Q1

REPORT INFORMATION
  Report Type: 
  Country: None (occurrence: None)
  Receive Date: 20050207
  Receipt Date: 20040914
  Transmission Date: 20050727
  Serious: Yes (Other)
  Sender: FDA-Public Use
  Company Number: PROG00204003270

PATIENT
  Age: 63 Year
  Sex: Female
  Weight: 81.5 kg

DRUGS (7)
  1. PROMETRIUM [Suspect]
     Indication: HORMONE REPLACEMENT THERAPY
     Dosage: 100 MILLIGRAM(S), QD; ORAL
     Route: 048
     Dates: start: 19990201, end: 19990101
  2. ESTRATAB [Suspect]
     Indication: HORMONE REPLACEMENT THERAPY
     Dosage: 0.625 MILLIGRAM(S), QD; ORAL
     Route: 048
     Dates: start: 19980401, end: 19990801
  3. ESTRADIOL [Suspect]
     Indication: HORMONE REPLACEMENT THERAPY
     Dosage: 1 MILLIGRAM(S), QD
     Dates: start: 19980101, end: 19990801
  4. MEDROXYPROGESTERONE [Suspect]
     Indication: HORMONE REPLACEMENT THERAPY
     Dosage: 10 MILLIGRAM(S), QD; ORAL
     Route: 048
     Dates: start: 19971001, end: 19981201
  5. CYCRIN [Suspect]
     Indication: HORMONE REPLACEMENT THERAPY
     Dosage: 10 MILLIGRAM(S) QD; ORAL
     Route: 048
     Dates: start: 19970801, end: 19970901
  6. ESTRACE [Suspect]
     Indication: HORMONE REPLACEMENT THERAPY
     Dosage: 1 MILLIGRAM(S) QD; ORAL
     Route: 048
     Dates: start: 19970701, end: 19971101
  7. ... [Concomitant]

REACTIONS (1)
  - BREAST CANCER [None]
